FAERS Safety Report 8135507 (Version 10)
Quarter: 2013Q3

REPORT INFORMATION
  Report Type: Report from Study
  Country: IL (occurrence: IL)
  Receive Date: 20110914
  Receipt Date: 20130725
  Transmission Date: 20140515
  Serious: Yes (Life-Threatening, Hospitalization)
  Sender: FDA-Public Use
  Company Number: IL-ROCHE-800583

PATIENT
  Age: 50 Year
  Sex: Male
  Weight: 75.7 kg

DRUGS (6)
  1. VEMURAFENIB [Suspect]
     Indication: METASTATIC MALIGNANT MELANOMA
     Dosage: MOST RECENT DOSE PRIOR TO EVENT BECAME SERIOUS WAS ON 21/AUG/2011.
     Route: 048
     Dates: start: 20110711
  2. VEMURAFENIB [Suspect]
     Dosage: DOSE REDUCED
     Route: 048
     Dates: start: 20110808, end: 20110822
  3. VEMURAFENIB [Suspect]
     Dosage: DOSE REDUCED
     Route: 048
     Dates: start: 20110911
  4. PREDNISOLONE [Concomitant]
     Route: 065
  5. BEVITEX [Concomitant]
     Dosage: 1000 UG, 1 PER DAY / MCG
     Route: 065
  6. LORASTINE [Concomitant]
     Route: 065
     Dates: start: 20110731, end: 20110922

REACTIONS (1)
  - Drug-induced liver injury [Recovered/Resolved with Sequelae]
